FAERS Safety Report 13107621 (Version 2)
Quarter: 2017Q1

REPORT INFORMATION
  Report Type: Spontaneous
  Country: US (occurrence: US)
  Receive Date: 20170112
  Receipt Date: 20170317
  Transmission Date: 20170428
  Serious: No
  Sender: FDA-Public Use
  Company Number: US-ASTRAZENECA-2017SE02731

PATIENT
  Age: 64 Year
  Sex: Male
  Weight: 65.8 kg

DRUGS (5)
  1. NEXIUM 24HR [Suspect]
     Active Substance: ESOMEPRAZOLE MAGNESIUM
     Indication: ABDOMINAL DISCOMFORT
     Dosage: 22.3 MG (ONE AT NIGHT)
     Route: 048
  2. DYRENIUM [Concomitant]
     Active Substance: TRIAMTERENE
     Indication: DIURETIC THERAPY
  3. DYRENIUM [Concomitant]
     Active Substance: TRIAMTERENE
     Indication: DIZZINESS
  4. NEXIUM 24HR [Suspect]
     Active Substance: ESOMEPRAZOLE MAGNESIUM
     Indication: GASTROOESOPHAGEAL REFLUX DISEASE
     Dosage: 22.3 MG (ONE AT NIGHT)
     Route: 048
  5. DYRENIUM [Concomitant]
     Active Substance: TRIAMTERENE
     Indication: FLUID RETENTION

REACTIONS (2)
  - Rash [Unknown]
  - Product use issue [Unknown]
